FAERS Safety Report 8460400-X (Version None)
Quarter: 2012Q2

REPORT INFORMATION
  Report Type: 
  Country: None (occurrence: None)
  Receive Date: 20120622
  Receipt Date: 20120614
  Transmission Date: 20120825
  Serious: Yes (Death, Hospitalization, Other)
  Sender: FDA-Public Use
  Company Number: JP-ELI_LILLY_AND_COMPANY-JP201106005260

PATIENT
  Age: 70 Year
  Sex: Male

DRUGS (14)
  1. NITRAZEPAM [Concomitant]
     Dosage: UNK, QD
     Route: 048
  2. LOXONIN [Concomitant]
     Dosage: UNK, TID
     Route: 048
  3. RABEPRAZOLE SODIUM [Concomitant]
     Dosage: UNK, BID
     Route: 048
  4. EMEND [Concomitant]
     Dosage: UNK, QD
     Route: 048
     Dates: start: 20110614
  5. KETOPROFEN [Concomitant]
     Dosage: UNK, PRN
     Route: 062
  6. LEVOFLOXACIN [Concomitant]
     Dosage: UNK, QD
     Route: 048
  7. EMEND [Concomitant]
     Dosage: UNK, QD
     Route: 048
     Dates: start: 20110613, end: 20110613
  8. SOLU-MEDROL [Concomitant]
     Dosage: UNK
     Route: 042
  9. PROGRAF [Concomitant]
     Dosage: UNK, BID
     Route: 048
  10. MEROPENEM [Concomitant]
     Dosage: UNK
     Route: 042
     Dates: start: 20110609
  11. DECADRON [Concomitant]
     Dosage: UNK
     Route: 042
  12. GEMZAR [Suspect]
     Indication: TRANSITIONAL CELL CARCINOMA
     Dosage: UNK
     Route: 042
     Dates: start: 20110613
  13. GASCON [Concomitant]
     Dosage: UNK, TID
     Route: 048
  14. ALOXI [Concomitant]
     Dosage: UNK
     Route: 042

REACTIONS (6)
  - INTERSTITIAL LUNG DISEASE [None]
  - MELAENA [None]
  - ALLERGIC RESPIRATORY SYMPTOM [None]
  - DEATH [None]
  - CONDITION AGGRAVATED [None]
  - COMPUTERISED TOMOGRAM ABNORMAL [None]
